FAERS Safety Report 12337147 (Version 7)
Quarter: 2017Q3

REPORT INFORMATION
  Report Type: Report from Study
  Country: PA (occurrence: PA)
  Receive Date: 20160505
  Receipt Date: 20170726
  Transmission Date: 20171127
  Serious: Yes (Other)
  Sender: FDA-Public Use
  Company Number: PHHY2016PA061228

PATIENT
  Age: 44 Year
  Sex: Female
  Weight: 86 kg

DRUGS (1)
  1. SANDOSTATIN LAR DEPOT [Suspect]
     Active Substance: OCTREOTIDE ACETATE
     Indication: ACROMEGALY
     Dosage: 20 MG, QMO
     Route: 030
     Dates: start: 20160422

REACTIONS (15)
  - Abdominal mass [Unknown]
  - Asthenia [Unknown]
  - Headache [Unknown]
  - Oral disorder [Unknown]
  - Hypersensitivity [Unknown]
  - Uterine abscess [Recovering/Resolving]
  - Abdominal pain [Recovered/Resolved]
  - Alopecia [Unknown]
  - Dysgeusia [Unknown]
  - Abdominal discomfort [Unknown]
  - Neoplasm [Unknown]
  - Decreased appetite [Unknown]
  - Mass [Unknown]
  - Uterine haemorrhage [Recovering/Resolving]
  - Diarrhoea [Recovered/Resolved]

NARRATIVE: CASE EVENT DATE: 20160422
